FAERS Safety Report 25382662 (Version 1)
Quarter: 2025Q2

REPORT INFORMATION
  Report Type: Spontaneous
  Country: GB (occurrence: GB)
  Receive Date: 20250601
  Receipt Date: 20250601
  Transmission Date: 20250716
  Serious: Yes (Other)
  Sender: CELLTRION
  Company Number: None

PATIENT

DRUGS (3)
  1. YUFLYMA [Suspect]
     Active Substance: ADALIMUMAB-AATY
     Indication: Adverse drug reaction
     Dates: start: 20250324
  2. YUFLYMA [Suspect]
     Active Substance: ADALIMUMAB-AATY
  3. METHOTREXATE [Concomitant]
     Active Substance: METHOTREXATE
     Indication: Adverse drug reaction

REACTIONS (6)
  - Rash papular [Recovering/Resolving]
  - Metamorphopsia [Unknown]
  - Balance disorder [Unknown]
  - Injection site erythema [Unknown]
  - Dyspnoea [Unknown]
  - Intentional product use issue [Unknown]
